FAERS Safety Report 4515545-3 (Version None)
Quarter: 2004Q4

REPORT INFORMATION
  Report Type: 
  Country: None (occurrence: None)
  Receive Date: 20041126
  Receipt Date: 20041117
  Transmission Date: 20050328
  Serious: Yes (Other)
  Sender: FDA-Public Use
  Company Number: 2004094461

PATIENT
  Age: 80 Year
  Sex: Female
  Weight: 73.4827 kg

DRUGS (4)
  1. DETROL LA [Suspect]
     Indication: BLADDER DISORDER
     Dosage: SEE IMAGE
     Route: 048
     Dates: start: 20030101, end: 20030101
  2. DETROL LA [Suspect]
     Indication: BLADDER DISORDER
     Dosage: SEE IMAGE
     Route: 048
     Dates: start: 20030101
  3. DETROL [Suspect]
     Indication: BLADDER DISORDER
  4. VITAMINS (VITAMINS) [Concomitant]

REACTIONS (7)
  - BLINDNESS UNILATERAL [None]
  - DRUG INEFFECTIVE [None]
  - EYE INJURY [None]
  - FALL [None]
  - PROCEDURAL COMPLICATION [None]
  - RETINAL HAEMORRHAGE [None]
  - URGE INCONTINENCE [None]
